FAERS Safety Report 21557039 (Version 1)
Quarter: 2022Q4

REPORT INFORMATION
  Report Type: Spontaneous
  Country: US (occurrence: US)
  Receive Date: 20221104
  Receipt Date: 20221104
  Transmission Date: 20230112
  Serious: Yes (Death)
  Sender: FDA-Public Use
  Company Number: US-MORPHOSYS US-2022-MOR002544-US

PATIENT
  Sex: Female

DRUGS (1)
  1. MONJUVI [Suspect]
     Active Substance: TAFASITAMAB-CXIX
     Indication: Diffuse large B-cell lymphoma
     Dosage: 773 MILLIGRAM, DAY 1, 8, 15, AND 22 EVERY 28 DAYS
     Dates: start: 20220120, end: 20220127

REACTIONS (1)
  - Death [Fatal]
